FAERS Safety Report 5776156-5 (Version None)
Quarter: 2008Q2

REPORT INFORMATION
  Report Type: 
  Country: None (occurrence: None)
  Receive Date: 20080613
  Receipt Date: 20080603
  Transmission Date: 20081010
  Serious: Yes (Death, Other)
  Sender: FDA-Public Use
  Company Number: 2008US001366

PATIENT
  Age: 38 Year
  Sex: Male

DRUGS (2)
  1. TACROLIMUS [Suspect]
     Indication: RENAL TRANSPLANT
     Dosage: 5 MG, BID, ORAL
     Route: 048
     Dates: start: 20040323, end: 20080512
  2. CELLCEPT [Concomitant]

REACTIONS (3)
  - ACINETOBACTER BACTERAEMIA [None]
  - CYTOMEGALOVIRUS INFECTION [None]
  - SEPSIS [None]
